FAERS Safety Report 14707930 (Version 2)
Quarter: 2018Q2

REPORT INFORMATION
  Report Type: Spontaneous
  Country: US (occurrence: US)
  Receive Date: 20180403
  Receipt Date: 20180504
  Transmission Date: 20180711
  Serious: No
  Sender: FDA-Public Use
  Company Number: US-PFIZER INC-2018133911

PATIENT
  Age: 34 Year
  Sex: Male
  Weight: 72.57 kg

DRUGS (4)
  1. ALEVE [Concomitant]
     Active Substance: NAPROXEN SODIUM
  2. IBUPROFEN. [Suspect]
     Active Substance: IBUPROFEN
     Indication: HEADACHE
     Dosage: TOOK 2-3 AS NEEDED
  3. ADVIL COLD AND SINUS [Suspect]
     Active Substance: IBUPROFEN\PSEUDOEPHEDRINE HYDROCHLORIDE
     Indication: SINUSITIS
     Dosage: 2 CAPSULES
     Route: 048
     Dates: start: 20180329, end: 20180329
  4. IBUPROFEN. [Suspect]
     Active Substance: IBUPROFEN
     Indication: PAIN

REACTIONS (4)
  - Dyspnoea [Recovered/Resolved]
  - Eye swelling [Not Recovered/Not Resolved]
  - Drug hypersensitivity [Unknown]
  - Rash [Not Recovered/Not Resolved]

NARRATIVE: CASE EVENT DATE: 20180329
